FAERS Safety Report 15025514 (Version 1)
Quarter: 2018Q2

REPORT INFORMATION
  Report Type: Spontaneous
  Country: US (occurrence: US)
  Receive Date: 20180618
  Receipt Date: 20180618
  Transmission Date: 20180711
  Serious: No
  Sender: FDA-Public Use
  Company Number: US-GALDERMA-US18008805

PATIENT
  Age: 12 Year
  Sex: Female

DRUGS (9)
  1. PROACTIV GENTLE FORMULA CLARIFYING TONER [Concomitant]
     Route: 061
     Dates: start: 20170401, end: 20171228
  2. PROACTIV GENTLE FORMULA CLARIFYING CLEANSER [Concomitant]
     Active Substance: SALICYLIC ACID
     Route: 061
     Dates: start: 20170401, end: 20171228
  3. PROACTIV MD DEEP CLEANSING FACE WASH [Concomitant]
     Active Substance: COSMETICS
     Route: 061
     Dates: start: 20170401, end: 20171228
  4. PROACTIV RENEWING CLEANSER [Concomitant]
     Active Substance: BENZOYL PEROXIDE
     Route: 061
     Dates: start: 20170401, end: 20171228
  5. PROACTIV REPAIRING TREATMENT [Concomitant]
     Active Substance: BENZOYL PEROXIDE
     Route: 061
     Dates: start: 20170401, end: 20171228
  6. PROACTIV GENTLE FORMULA CLARIFYING NIGHT LOTION [Concomitant]
     Route: 061
     Dates: start: 20170401, end: 20171228
  7. PROACTIV GENTLE FORMULA CLARIFYING DAY LOTION [Concomitant]
     Route: 061
     Dates: start: 20170401, end: 20171228
  8. PROACTIV REVITALIZING TONER [Concomitant]
     Route: 061
     Dates: start: 20170401, end: 20171228
  9. PROACTIV MD ADAPALENE ACNE TREATMENT [Suspect]
     Active Substance: ADAPALENE
     Indication: PRODUCT USED FOR UNKNOWN INDICATION
     Dosage: 0.1%
     Route: 061
     Dates: start: 20170401, end: 20171228

REACTIONS (4)
  - Skin burning sensation [Recovered/Resolved]
  - Skin fissures [Recovered/Resolved]
  - Inappropriate schedule of drug administration [Recovered/Resolved]
  - Underdose [Recovered/Resolved]

NARRATIVE: CASE EVENT DATE: 20170401
